FAERS Safety Report 4592028-6 (Version None)
Quarter: 2005Q1

REPORT INFORMATION
  Report Type: 
  Country: None (occurrence: None)
  Receive Date: 20050225
  Receipt Date: 20050217
  Transmission Date: 20050727
  Serious: Yes (Other)
  Sender: FDA-Public Use
  Company Number: US-GLAXOSMITHKLINE-A0546058A

PATIENT
  Age: 52 Year
  Sex: Female

DRUGS (7)
  1. LAMICTAL [Suspect]
     Indication: BIPOLAR DISORDER
     Dosage: 25Z PER DAY
     Route: 048
     Dates: start: 20041226, end: 20050205
  2. CELEXA [Concomitant]
  3. WELLBUTRIN XL [Concomitant]
  4. KLONOPIN [Concomitant]
  5. AMBIEN [Concomitant]
  6. SEROQUEL [Concomitant]
  7. HYDROCODONE [Concomitant]

REACTIONS (10)
  - DERMATITIS EXFOLIATIVE [None]
  - FATIGUE [None]
  - HYPOMANIA [None]
  - INFLUENZA LIKE ILLNESS [None]
  - NECK PAIN [None]
  - PAIN [None]
  - PHARYNGOLARYNGEAL PAIN [None]
  - PRURITUS GENERALISED [None]
  - RASH [None]
  - URTICARIA [None]
